FAERS Safety Report 18820903 (Version 1)
Quarter: 2021Q1

REPORT INFORMATION
  Report Type: Spontaneous
  Country: US (occurrence: US)
  Receive Date: 20210201
  Receipt Date: 20210201
  Transmission Date: 20210419
  Serious: Yes (Other)
  Sender: FDA-Public Use
  Company Number: None

PATIENT
  Age: 61 Year
  Sex: Male

DRUGS (74)
  1. DIAMOX SEQUELS [Concomitant]
     Active Substance: ACETAZOLAMIDE
  2. OLANZAPINE. [Concomitant]
     Active Substance: OLANZAPINE
  3. PROTONIX [Concomitant]
     Active Substance: PANTOPRAZOLE SODIUM
  4. ADENOSINE. [Concomitant]
     Active Substance: ADENOSINE
  5. ALBUMIN [Concomitant]
     Active Substance: ALBUMIN HUMAN
  6. BANATROL [Concomitant]
  7. BISACODYL. [Concomitant]
     Active Substance: BISACODYL
  8. AVYCAZ [Concomitant]
     Active Substance: AVIBACTAM SODIUM\CEFTAZIDIME
  9. EPINEPHRINE. [Concomitant]
     Active Substance: EPINEPHRINE
  10. TRIAD [Concomitant]
     Active Substance: ACETAMINOPHEN\BUTALBITAL\CAFFEINE
  11. METOLAZONE. [Concomitant]
     Active Substance: METOLAZONE
  12. ARTIFICIAL TEARS [Concomitant]
     Active Substance: GLYCERIN\HYPROMELLOSES\POLYETHYLENE GLYCOL 400
  13. SENNA [Concomitant]
     Active Substance: SENNA LEAF\SENNOSIDES\SENNOSIDES A AND B
  14. NAPO3 [Concomitant]
  15. FLOMAX [Concomitant]
     Active Substance: TAMSULOSIN HYDROCHLORIDE
  16. VASOPRESSIN. [Concomitant]
     Active Substance: VASOPRESSIN
  17. AMIODARONE [Concomitant]
     Active Substance: AMIODARONE
  18. APIXABAN [Concomitant]
     Active Substance: APIXABAN
  19. ATORVASTATIN [Concomitant]
     Active Substance: ATORVASTATIN
  20. CEFEPIME [Concomitant]
     Active Substance: CEFEPIME HYDROCHLORIDE
  21. CLONAZEPAM. [Concomitant]
     Active Substance: CLONAZEPAM
  22. DECADRON [Concomitant]
     Active Substance: DEXAMETHASONE
  23. DOCUSATE [Concomitant]
     Active Substance: DOCUSATE
  24. DILAUDID [Concomitant]
     Active Substance: HYDROMORPHONE HYDROCHLORIDE
  25. REGLAN [Concomitant]
     Active Substance: METOCLOPRAMIDE HYDROCHLORIDE
  26. EFFER?K [Concomitant]
  27. KLOR?CON [Concomitant]
     Active Substance: POTASSIUM CHLORIDE
  28. KPHOS [Concomitant]
  29. PREDNISONE. [Concomitant]
     Active Substance: PREDNISONE
  30. ROCURONIUM [Concomitant]
     Active Substance: ROCURONIUM BROMIDE
  31. FLONASE [Concomitant]
     Active Substance: FLUTICASONE PROPIONATE
  32. NYSTATIN. [Concomitant]
     Active Substance: NYSTATIN
  33. KCL [Concomitant]
     Active Substance: POTASSIUM CHLORIDE
  34. DEXTROSE. [Concomitant]
     Active Substance: DEXTROSE
  35. ERTAPENEM. [Concomitant]
     Active Substance: ERTAPENEM SODIUM
  36. GABAPENTIN. [Concomitant]
     Active Substance: GABAPENTIN
  37. MIDAZOLAM. [Concomitant]
     Active Substance: MIDAZOLAM
  38. APAP [Concomitant]
     Active Substance: ACETAMINOPHEN
  39. MIDODRINE [Concomitant]
     Active Substance: MIDODRINE
  40. MIRALAX [Concomitant]
     Active Substance: POLYETHYLENE GLYCOL 3350
  41. POTASSIUM?SODIUM PHOSPHATES [Concomitant]
  42. ASPIRIN. [Concomitant]
     Active Substance: ASPIRIN
  43. VENELEX [Concomitant]
     Active Substance: BALSAM PERU\CASTOR OIL
  44. DEXMEDETOMIDINE. [Concomitant]
     Active Substance: DEXMEDETOMIDINE
  45. ENOXAPARIN [Concomitant]
     Active Substance: ENOXAPARIN
  46. INSULIN GLARGINE [Concomitant]
     Active Substance: INSULIN GLARGINE
  47. KETAMINE [Concomitant]
     Active Substance: KETAMINE
  48. SYNTHROID [Concomitant]
     Active Substance: LEVOTHYROXINE SODIUM
  49. LIDOCAINE\DIPHENHYDRAMINE\ALUM?MAG HYDROXIDE [Concomitant]
  50. PHENYLEPHRINE [Concomitant]
     Active Substance: PHENYLEPHRINE HYDROCHLORIDE
  51. PROPOFOL. [Concomitant]
     Active Substance: PROPOFOL
  52. NAHCO3 [Concomitant]
     Active Substance: SODIUM BICARBONATE
  53. TACROLIMUS. [Concomitant]
     Active Substance: TACROLIMUS
  54. VANCOCIN [Concomitant]
     Active Substance: VANCOMYCIN HYDROCHLORIDE
  55. LACTULOSE. [Concomitant]
     Active Substance: LACTULOSE
  56. LORAZEPAM. [Concomitant]
     Active Substance: LORAZEPAM
  57. MERREM [Concomitant]
     Active Substance: MEROPENEM
  58. OXYCODONE [Concomitant]
     Active Substance: OXYCODONE
  59. REMDESIVIR. [Concomitant]
     Active Substance: REMDESIVIR
  60. NACL [Concomitant]
     Active Substance: SODIUM CHLORIDE
  61. PROSOURCE [Concomitant]
     Active Substance: DIETARY SUPPLEMENT
  62. DEXTROSE, UNSPECIFIED FORM. [Concomitant]
     Active Substance: DEXTROSE, UNSPECIFIED FORM
  63. LASIX [Concomitant]
     Active Substance: FUROSEMIDE
  64. HEPARIN [Concomitant]
     Active Substance: HEPARIN SODIUM
  65. LACTATED RINGERS SOLUTION [Concomitant]
     Active Substance: CALCIUM CHLORIDE\POTASSIUM CHLORIDE\SODIUM CHLORIDE\SODIUM LACTATE
  66. MGSO4 [Concomitant]
     Active Substance: MAGNESIUM SULFATE
  67. CHLORHEXIDINE GLUCONATE ORAL RINSE, 0.12% [Suspect]
     Active Substance: CHLORHEXIDINE GLUCONATE
     Indication: PNEUMONIA
     Dates: start: 20200727, end: 20200905
  68. NOREPINEPHRINE. [Concomitant]
     Active Substance: NOREPINEPHRINE
  69. ZOSYN [Concomitant]
     Active Substance: PIPERACILLIN SODIUM\TAZOBACTAM SODIUM
  70. THEOPHYLLINE [Concomitant]
     Active Substance: THEOPHYLLINE ANHYDROUS
  71. REFRESH P.M. [Concomitant]
     Active Substance: MINERAL OIL\PETROLATUM
  72. PEPCID [Concomitant]
     Active Substance: FAMOTIDINE
  73. INSULIN REGULAR HUMAN [Concomitant]
  74. LIDOCAINE. [Concomitant]
     Active Substance: LIDOCAINE

REACTIONS (8)
  - Lacunar infarction [None]
  - COVID-19 [None]
  - Klebsiella infection [None]
  - Product contamination microbial [None]
  - Respiratory failure [None]
  - Intentional product use issue [None]
  - Mental disorder [None]
  - Burkholderia test positive [None]

NARRATIVE: CASE EVENT DATE: 20200823
